FAERS Safety Report 15351385 (Version 1)
Quarter: 2018Q3

REPORT INFORMATION
  Report Type: Spontaneous
  Country: US (occurrence: US)
  Receive Date: 20180905
  Receipt Date: 20180905
  Transmission Date: 20181010
  Serious: No
  Sender: FDA-Public Use
  Company Number: US-PFIZER INC-2018354898

PATIENT
  Age: 7 Year
  Sex: Male

DRUGS (1)
  1. GENOTROPIN [Suspect]
     Active Substance: SOMATROPIN
     Dosage: 0.7 MG, DAILY
     Dates: start: 20101207

REACTIONS (4)
  - Aspartate aminotransferase increased [Unknown]
  - Drug dose omission [Unknown]
  - Prealbumin increased [Unknown]
  - Bilirubin conjugated decreased [Unknown]
